FAERS Safety Report 13121127 (Version 1)
Quarter: 2017Q1

REPORT INFORMATION
  Report Type: Other
  Country: US (occurrence: US)
  Receive Date: 20170117
  Receipt Date: 20170117
  Transmission Date: 20170428
  Serious: Yes (Death)
  Sender: FDA-Public Use
  Company Number: US-OSMOTICA_PHARMACEUTICAL_US_LLC-POI0573201700009

PATIENT
  Age: 35 Year
  Sex: Male

DRUGS (10)
  1. DIPHENHYDRAMINE. [Suspect]
     Active Substance: DIPHENHYDRAMINE
     Dates: end: 2015
  2. VENLAFAXINE [Suspect]
     Active Substance: VENLAFAXINE HYDROCHLORIDE
     Dates: end: 2015
  3. COTININE [Suspect]
     Active Substance: COTININE
     Dates: end: 2015
  4. CAFFEINE. [Suspect]
     Active Substance: CAFFEINE
     Dates: end: 2015
  5. NALOXONE [Suspect]
     Active Substance: NALOXONE
     Dates: end: 2015
  6. TAPENTADOL [Suspect]
     Active Substance: TAPENTADOL
     Dates: end: 2015
  7. HYDROMORPHONE [Suspect]
     Active Substance: HYDROMORPHONE
     Dates: end: 2015
  8. HYDROCODONE [Suspect]
     Active Substance: HYDROCODONE
     Dates: end: 2015
  9. PENTACHLOROPHENOL [Suspect]
     Active Substance: PENTACHLOROPHENOL
     Dates: end: 2015
  10. FENTANYL. [Suspect]
     Active Substance: FENTANYL
     Dates: end: 2015

REACTIONS (1)
  - Poisoning deliberate [Fatal]

NARRATIVE: CASE EVENT DATE: 2015
